FAERS Safety Report 23285574 (Version 1)
Quarter: 2023Q4

REPORT INFORMATION
  Report Type: Spontaneous
  Country: US (occurrence: None)
  Receive Date: 20231211
  Receipt Date: 20231211
  Transmission Date: 20240109
  Serious: No
  Sender: FDA-Public Use
  Company Number: None

PATIENT
  Age: 70 Year
  Sex: Female

DRUGS (1)
  1. AUSTEDO [Suspect]
     Active Substance: DEUTETRABENAZINE
     Indication: Huntington^s disease
     Dosage: 12MG TWICE A DAY BY MOUTH?
     Route: 048
     Dates: start: 20230327

REACTIONS (3)
  - Somnolence [None]
  - Vision blurred [None]
  - Dizziness [None]

NARRATIVE: CASE EVENT DATE: 20231211
